FAERS Safety Report 19397701 (Version 2)
Quarter: 2021Q2

REPORT INFORMATION
  Report Type: Spontaneous
  Country: CA (occurrence: CA)
  Receive Date: 20210610
  Receipt Date: 20210613
  Transmission Date: 20210717
  Serious: Yes (Other)
  Sender: FDA-Public Use
  Company Number: CA-JNJFOC-20210610298

PATIENT
  Age: 36 Year
  Sex: Male
  Weight: 75 kg

DRUGS (7)
  1. CALCIUM [Concomitant]
     Active Substance: CALCIUM
  2. PREDNISONE. [Concomitant]
     Active Substance: PREDNISONE
     Route: 048
  3. INFLIXIMAB, RECOMBINANT [Suspect]
     Active Substance: INFLIXIMAB
     Indication: COLITIS ULCERATIVE
     Route: 042
  4. SOLU?MEDROL [Concomitant]
     Active Substance: METHYLPREDNISOLONE SODIUM SUCCINATE
     Indication: RASH
     Route: 065
  5. CICLOPIROX. [Concomitant]
     Active Substance: CICLOPIROX
  6. VITAMIN D [ERGOCALCIFEROL] [Concomitant]
     Active Substance: ERGOCALCIFEROL
     Route: 048
  7. PREDNISONE. [Concomitant]
     Active Substance: PREDNISONE
     Route: 065

REACTIONS (22)
  - Middle insomnia [Unknown]
  - Chest discomfort [Unknown]
  - Oedema [Unknown]
  - Dyschromatopsia [Unknown]
  - Hypoaesthesia [Unknown]
  - Eye disorder [Unknown]
  - Allergy to animal [Unknown]
  - Dyspnoea exertional [Unknown]
  - Rash papular [Unknown]
  - Condition aggravated [Unknown]
  - Off label use [Unknown]
  - Vision blurred [Unknown]
  - Respiratory disorder [Unknown]
  - Stress [Unknown]
  - Blood pressure increased [Unknown]
  - Tremor [Unknown]
  - Acne [Unknown]
  - Photosensitivity reaction [Unknown]
  - Therapeutic product effect incomplete [Unknown]
  - Sunburn [Unknown]
  - Hypertension [Unknown]
  - Weight increased [Unknown]
